FAERS Safety Report 11739206 (Version 1)
Quarter: 2015Q4

REPORT INFORMATION
  Report Type: Spontaneous
  Country: US (occurrence: US)
  Receive Date: 20151113
  Receipt Date: 20151113
  Transmission Date: 20160304
  Serious: No
  Sender: FDA-Public Use
  Company Number: US-ROCHE-1352265

PATIENT
  Sex: Female

DRUGS (1)
  1. KADCYLA [Suspect]
     Active Substance: ADO-TRASTUZUMAB EMTANSINE
     Indication: HER-2 POSITIVE BREAST CANCER
     Route: 042

REACTIONS (5)
  - Dysgeusia [Unknown]
  - Neuropathy peripheral [Recovering/Resolving]
  - Palmar erythema [Not Recovered/Not Resolved]
  - Erythema [Unknown]
  - Tongue discolouration [Not Recovered/Not Resolved]
